FAERS Safety Report 6866730-7 (Version None)
Quarter: 2010Q3

REPORT INFORMATION
  Report Type: 
  Country: None (occurrence: None)
  Receive Date: 20100722
  Receipt Date: 20100623
  Transmission Date: 20110219
  Serious: Yes (Hospitalization, Other)
  Sender: FDA-Public Use
  Company Number: PHHY2010JP42471

PATIENT
  Sex: Female
  Weight: 52 kg

DRUGS (18)
  1. DIOVAN [Suspect]
     Dosage: 80 MG, QD
     Route: 048
     Dates: start: 20090129, end: 20090510
  2. NORVASC [Concomitant]
     Indication: HYPERTENSION
     Dosage: 5 MG
     Route: 048
  3. MICARDIS [Concomitant]
     Indication: HYPERTENSION
     Dosage: 40 MG
     Route: 048
     Dates: start: 20090127
  4. MAINTATE [Concomitant]
     Indication: HYPERTENSION
     Dosage: 7.5 MG/DAILY
     Route: 048
     Dates: start: 20090128
  5. ADALAT CC [Concomitant]
     Indication: HYPERTENSION
     Dosage: 40 MG
     Route: 048
     Dates: start: 20090202
  6. DOXAZOSIN MESYLATE [Concomitant]
     Indication: HYPERTENSION
     Dosage: 2 MG
     Route: 048
     Dates: start: 20090205
  7. EPLERENONE [Concomitant]
     Indication: HYPERTENSION
     Dosage: 25 MG
     Route: 048
     Dates: start: 20090701
  8. LOSARTAN POTASSIUM AND HYDROCHLOROTHIAZIDE [Concomitant]
     Indication: HYPERTENSION
     Dosage: UNK
     Route: 048
     Dates: start: 20090701
  9. TENORMIN [Concomitant]
     Indication: HYPERTENSION
     Dosage: 25 MG
     Route: 048
     Dates: start: 20090701
  10. HERBESSER [Concomitant]
     Dosage: 28.7 MG
     Route: 042
     Dates: start: 20090129, end: 20090203
  11. NITROGLYCERIN [Concomitant]
     Dosage: 85.5 MG
     Route: 042
     Dates: start: 20090128, end: 20090131
  12. PERDIPINE [Concomitant]
     Dosage: 17.7 MG
     Route: 042
     Dates: start: 20090128, end: 20090129
  13. GASTER [Concomitant]
     Dosage: UNK
     Route: 048
     Dates: start: 20090129
  14. MAGLAX [Concomitant]
     Dosage: UNK
     Route: 048
     Dates: start: 20090202
  15. OMEPRAZOLE [Concomitant]
     Route: 048
  16. BUP-4 [Concomitant]
     Dosage: 10 MG
     Route: 048
  17. FERROMIA [Concomitant]
     Route: 048
  18. CELECOXIB [Concomitant]
     Dosage: UNK
     Route: 048
     Dates: start: 20090501

REACTIONS (4)
  - BLOOD PRESSURE INADEQUATELY CONTROLLED [None]
  - COMPRESSION FRACTURE [None]
  - FALL [None]
  - INTERVERTEBRAL DISC PROTRUSION [None]
